FAERS Safety Report 5110762-6 (Version None)
Quarter: 2006Q3

REPORT INFORMATION
  Report Type: 
  Country: None (occurrence: None)
  Receive Date: 20060919
  Receipt Date: 20060911
  Transmission Date: 20061208
  Serious: Yes (Hospitalization, Other)
  Sender: FDA-Public Use
  Company Number: US-2006-026735

PATIENT
  Sex: Female

DRUGS (1)
  1. MIRENA [Suspect]
     Dosage: 20 UG/DAY, CONT, INTRA-UTERINE
     Route: 015
     Dates: start: 20060904, end: 20060911

REACTIONS (4)
  - ASTHENIA [None]
  - HAEMORRHAGE [None]
  - VAGINAL HAEMORRHAGE [None]
  - VITAL FUNCTIONS ABNORMAL [None]
